FAERS Safety Report 5487877-6 (Version None)
Quarter: 2007Q4

REPORT INFORMATION
  Report Type: 
  Country: None (occurrence: None)
  Receive Date: 20071017
  Receipt Date: 20071011
  Transmission Date: 20080405
  Serious: Yes (Death, Hospitalization, Other)
  Sender: FDA-Public Use
  Company Number: FR-BRISTOL-MYERS SQUIBB COMPANY-13939004

PATIENT
  Age: 87 Year
  Sex: Female

DRUGS (8)
  1. COUMADIN [Suspect]
     Route: 048
     Dates: end: 20070706
  2. ACTONEL [Concomitant]
     Route: 048
  3. DIGOXIN [Concomitant]
     Route: 048
  4. LASIX [Concomitant]
     Route: 048
  5. LEVOTHYROX [Concomitant]
     Route: 048
  6. SEROPRAM [Concomitant]
     Route: 048
  7. EXELON [Concomitant]
  8. XANAX [Concomitant]
     Route: 048

REACTIONS (5)
  - COMA [None]
  - FALL [None]
  - HAEMATOMA [None]
  - HAEMORRHAGE INTRACRANIAL [None]
  - INTERNATIONAL NORMALISED RATIO DECREASED [None]
